FAERS Safety Report 9109791 (Version 1)
Quarter: 2013Q1

REPORT INFORMATION
  Report Type: Report from Study
  Country: FR (occurrence: FR)
  Receive Date: 20130222
  Receipt Date: 20130222
  Transmission Date: 20140127
  Serious: Yes (Hospitalization, Other)
  Sender: FDA-Public Use
  Company Number: FR-ROCHE-1190053

PATIENT
  Age: 70 Year
  Sex: Female
  Weight: 78 kg

DRUGS (12)
  1. TOCILIZUMAB [Suspect]
     Indication: RHEUMATOID ARTHRITIS
     Dosage: 8 MG/KG
     Route: 041
     Dates: start: 20110117
  2. TOCILIZUMAB [Suspect]
     Dosage: 8 MG/KG
     Route: 041
     Dates: start: 20110222
  3. TOCILIZUMAB [Suspect]
     Route: 041
     Dates: start: 20110321
  4. TOCILIZUMAB [Suspect]
     Route: 041
     Dates: start: 20110419, end: 20110712
  5. LAMALINE [Concomitant]
     Route: 065
  6. CARTREX [Concomitant]
     Route: 065
  7. SEROPLEX [Concomitant]
  8. LODOZ [Concomitant]
  9. INEXIUM [Concomitant]
     Route: 065
  10. VASTAREL [Concomitant]
  11. ORENCIA [Concomitant]
     Route: 065
  12. MABTHERA [Concomitant]
     Route: 065

REACTIONS (8)
  - Hypertension [Recovered/Resolved]
  - Renal failure [Recovered/Resolved]
  - Malaise [Recovered/Resolved]
  - Cholangitis sclerosing [Not Recovered/Not Resolved]
  - Hypertriglyceridaemia [Not Recovered/Not Resolved]
  - Hepatomegaly [Recovered/Resolved]
  - Cholestasis [Unknown]
  - Hepatocellular injury [Unknown]
